FAERS Safety Report 20700608 (Version 1)
Quarter: 2022Q2

REPORT INFORMATION
  Report Type: Spontaneous
  Country: US (occurrence: US)
  Receive Date: 20220412
  Receipt Date: 20220412
  Transmission Date: 20220721
  Serious: Yes (Other)
  Sender: FDA-Public Use
  Company Number: US-SA-2022SA115667

PATIENT
  Age: 79 Year
  Sex: Female

DRUGS (3)
  1. AMBIEN [Suspect]
     Active Substance: ZOLPIDEM TARTRATE
  2. OFEV [Suspect]
     Active Substance: NINTEDANIB
     Indication: Idiopathic pulmonary fibrosis
     Dosage: 150 MG, 1 IN EVERY 0.5 DAY
     Route: 048
     Dates: start: 20200805
  3. OFEV [Suspect]
     Active Substance: NINTEDANIB
     Dosage: 100 MG, 1 IN 12 HOUR
     Route: 048
     Dates: start: 20200729, end: 202010

REACTIONS (21)
  - Choking [Recovered/Resolved with Sequelae]
  - Loss of consciousness [Recovered/Resolved with Sequelae]
  - Pain in extremity [Not Recovered/Not Resolved]
  - Ear pain [Not Recovered/Not Resolved]
  - Food aversion [Recovered/Resolved with Sequelae]
  - Weight decreased [Not Recovered/Not Resolved]
  - Taste disorder [Unknown]
  - Abdominal discomfort [Unknown]
  - Abdominal discomfort [Recovering/Resolving]
  - Memory impairment [Unknown]
  - Flatulence [Not Recovered/Not Resolved]
  - Decreased appetite [Not Recovered/Not Resolved]
  - Constipation [Unknown]
  - Abdominal pain upper [Recovered/Resolved with Sequelae]
  - Pain [Unknown]
  - Fall [Recovered/Resolved with Sequelae]
  - Headache [Not Recovered/Not Resolved]
  - Vomiting [Recovered/Resolved with Sequelae]
  - Nausea [Recovered/Resolved with Sequelae]
  - Diarrhoea [Recovered/Resolved with Sequelae]
  - Abdominal pain [Recovering/Resolving]

NARRATIVE: CASE EVENT DATE: 20200801
